FAERS Safety Report 15301091 (Version 1)
Quarter: 2018Q3

REPORT INFORMATION
  Report Type: Spontaneous
  Country: AT (occurrence: AT)
  Receive Date: 20180821
  Receipt Date: 20180821
  Transmission Date: 20181010
  Serious: Yes (Other)
  Sender: FDA-Public Use
  Company Number: AT-ASTRAZENECA-2018SE89190

PATIENT
  Age: 27 Year
  Sex: Male

DRUGS (8)
  1. SEROQUEL XR [Suspect]
     Active Substance: QUETIAPINE FUMARATE
     Dosage: 400.0MG UNKNOWN
     Route: 048
     Dates: start: 20180215, end: 20180322
  2. SEROQUEL XR [Suspect]
     Active Substance: QUETIAPINE FUMARATE
     Dosage: 500.0MG UNKNOWN
     Route: 048
     Dates: start: 20180202, end: 20180205
  3. TEMESTA [Concomitant]
     Dosage: 0.4?4 MG
     Dates: start: 20180117, end: 20180315
  4. ABILIFY [Suspect]
     Active Substance: ARIPIPRAZOLE
     Dosage: 10.0MG UNKNOWN
     Route: 065
     Dates: start: 20180124, end: 20180129
  5. QUILONORM RETARD [Concomitant]
     Active Substance: LITHIUM CARBONATE
     Dates: start: 20180206, end: 20180212
  6. SEROQUEL XR [Suspect]
     Active Substance: QUETIAPINE FUMARATE
     Dosage: 450.0MG UNKNOWN
     Route: 048
     Dates: start: 20180125, end: 20180130
  7. DOMINAL (PROTHIPENDYL HYDROCHLORIDE) [Concomitant]
     Active Substance: PROTHIPENDYL HYDROCHLORIDE
     Dates: start: 20180201, end: 20180207
  8. SEROQUEL XR [Suspect]
     Active Substance: QUETIAPINE FUMARATE
     Dosage: 650.0MG UNKNOWN
     Route: 048
     Dates: start: 20180131, end: 20180201

REACTIONS (2)
  - Respiratory rate increased [Unknown]
  - Hypertension [Recovered/Resolved]

NARRATIVE: CASE EVENT DATE: 20180207
